FAERS Safety Report 5639398-5 (Version None)
Quarter: 2008Q1

REPORT INFORMATION
  Report Type: 
  Country: None (occurrence: None)
  Receive Date: 20080226
  Receipt Date: 20080214
  Transmission Date: 20080703
  Serious: Yes (Other)
  Sender: FDA-Public Use
  Company Number: RU-PFIZER INC-2008014335

PATIENT
  Age: 40 Year
  Sex: Female

DRUGS (1)
  1. ZIPRASIDONE (CAPS) [Suspect]
     Indication: SCHIZOPHRENIA
     Route: 048

REACTIONS (1)
  - NEOPLASM MALIGNANT [None]
